FAERS Safety Report 19855588 (Version 1)
Quarter: 2021Q3

REPORT INFORMATION
  Report Type: Spontaneous
  Country: US (occurrence: US)
  Receive Date: 20210920
  Receipt Date: 20210920
  Transmission Date: 20211014
  Serious: No
  Sender: FDA-Public Use
  Company Number: None

PATIENT
  Age: 29 Year
  Sex: Female
  Weight: 60.75 kg

DRUGS (2)
  1. NEXPLANON [Suspect]
     Active Substance: ETONOGESTREL
     Indication: CONTRACEPTION
     Dosage: QUANTITY:1 SINGLE IMPLANT;OTHER FREQUENCY:2 YEARS;?
     Route: 058
     Dates: start: 20210825
  2. CLARITON [Suspect]
     Active Substance: UNSPECIFIED INGREDIENT

REACTIONS (4)
  - Implant site erythema [None]
  - Implant site irritation [None]
  - Complication associated with device [None]
  - Implant site pruritus [None]

NARRATIVE: CASE EVENT DATE: 20210919
